FAERS Safety Report 6926403-9 (Version None)
Quarter: 2010Q3

REPORT INFORMATION
  Report Type: 
  Country: None (occurrence: None)
  Receive Date: 20100816
  Receipt Date: 20100811
  Transmission Date: 20110219
  Serious: Yes (Other)
  Sender: FDA-Public Use
  Company Number: CA-PURDUE-CAN-2010-0001479

PATIENT
  Age: 30 Year
  Sex: Female

DRUGS (1)
  1. BUTRANS TRANSDERMAL PATCH - 5 MCG/HR [Suspect]
     Indication: PRODUCT USED FOR UNKNOWN INDICATION
     Dosage: 5 MCG/HR, WEEKLY
     Route: 062

REACTIONS (2)
  - HYPOAESTHESIA [None]
  - SENSORY LOSS [None]
